FAERS Safety Report 6620020-6 (Version None)
Quarter: 2010Q1

REPORT INFORMATION
  Report Type: 
  Country: None (occurrence: None)
  Receive Date: 20100309
  Receipt Date: 20100204
  Transmission Date: 20100710
  Serious: Yes (Death)
  Sender: FDA-Public Use
  Company Number: NA-ROCHE-683807

PATIENT
  Sex: Male
  Weight: 80 kg

DRUGS (1)
  1. XELODA [Suspect]
     Route: 048
     Dates: start: 20100111, end: 20100114

REACTIONS (5)
  - BLISTER [None]
  - DIARRHOEA [None]
  - HAEMATEMESIS [None]
  - MELAENA [None]
  - STEVENS-JOHNSON SYNDROME [None]
